FAERS Safety Report 19808517 (Version 1)
Quarter: 2021Q3

REPORT INFORMATION
  Report Type: Spontaneous
  Country: CA (occurrence: CA)
  Receive Date: 20210908
  Receipt Date: 20210908
  Transmission Date: 20211014
  Serious: Yes (Other)
  Sender: FDA-Public Use
  Company Number: CA-PFIZER INC-2021284138

PATIENT
  Age: 48 Year
  Sex: Female
  Weight: 107.2 kg

DRUGS (2)
  1. METHOTREXATE SODIUM. [Suspect]
     Active Substance: METHOTREXATE SODIUM
     Dosage: 1 DF (DOSAGE NOT AVAILABLE)
     Route: 058
     Dates: start: 20210308, end: 202104
  2. METHOTREXATE SODIUM. [Suspect]
     Active Substance: METHOTREXATE SODIUM
     Dosage: 7.5 MG
     Dates: start: 20210719

REACTIONS (15)
  - Off label use [Unknown]
  - Product use issue [Unknown]
  - Hypersensitivity [Unknown]
  - Cardiac fibrillation [Unknown]
  - Abdominal pain upper [Unknown]
  - Oral infection [Unknown]
  - Loss of consciousness [Unknown]
  - Rash [Not Recovered/Not Resolved]
  - Discomfort [Unknown]
  - Acne [Unknown]
  - Nausea [Unknown]
  - Chest discomfort [Unknown]
  - Asthenia [Unknown]
  - Abdominal pain [Unknown]
  - Dizziness [Unknown]

NARRATIVE: CASE EVENT DATE: 20210308
